FAERS Safety Report 12780745 (Version 2)
Quarter: 2016Q4

REPORT INFORMATION
  Report Type: Report from Study
  Country: DE (occurrence: DE)
  Receive Date: 20160926
  Receipt Date: 20161026
  Transmission Date: 20170207
  Serious: Yes (Hospitalization)
  Sender: FDA-Public Use
  Company Number: DE-CELGENEUS-DEU-2016085936

PATIENT
  Age: 54 Year
  Sex: Male
  Weight: 105 kg

DRUGS (3)
  1. ABRAXANE [Suspect]
     Active Substance: PACLITAXEL
     Dosage: 274MG
     Route: 041
     Dates: start: 20151108, end: 20160809
  2. ABRAXANE [Suspect]
     Active Substance: PACLITAXEL
     Indication: PANCREATIC CARCINOMA METASTATIC
     Dosage: 275MG
     Route: 041
     Dates: start: 20150821, end: 20150821
  3. ABRAXANE [Suspect]
     Active Substance: PACLITAXEL
     Dosage: 269MG
     Route: 041
     Dates: start: 20150828, end: 20151028

REACTIONS (1)
  - Metastases to lung [Recovered/Resolved]

NARRATIVE: CASE EVENT DATE: 20160822
